FAERS Safety Report 6985642-1 (Version None)
Quarter: 2010Q3

REPORT INFORMATION
  Report Type: 
  Country: None (occurrence: None)
  Receive Date: 20100915
  Receipt Date: 20100906
  Transmission Date: 20110219
  Serious: Yes (Life-Threatening)
  Sender: FDA-Public Use
  Company Number: GXKR2010GB10128

PATIENT
  Age: 19 Year
  Sex: Female

DRUGS (14)
  1. CHLORPHENIRAMINE (NGX) [Suspect]
     Dosage: 10 MG, QID
     Route: 042
  2. OMEPRAZOLE (NGX) [Suspect]
     Route: 065
  3. ONDANSETRON [Suspect]
     Dosage: 8 MG, TID
     Route: 042
  4. ACYCLOVIR SODIUM [Suspect]
     Route: 065
  5. ALLOPURINOL [Suspect]
     Dosage: 300 MG, QD
     Route: 048
  6. CASPOFUNGIN [Suspect]
     Dosage: 70 MG, QD
     Route: 042
  7. CYCLOSPORINE [Suspect]
     Route: 065
  8. ETOPOPHOS PRESERVATIVE FREE [Suspect]
     Dosage: 4650 MG, UNK
     Route: 065
     Dates: start: 20070915
  9. KETALAR [Suspect]
     Indication: PAIN
     Dosage: 6 ML, 1 HOUR
     Route: 042
     Dates: start: 20070921, end: 20070928
  10. MORPHINE [Suspect]
     Route: 042
  11. NORETHISTERONE [Suspect]
     Dosage: 5 MG, TID
     Route: 048
  12. ACETAMINOPHEN [Suspect]
     Route: 042
  13. TAZOCIN [Suspect]
     Dosage: 4.5 MG, TID
     Route: 042
  14. VORICONAZOLE [Suspect]
     Dosage: 200 MG, BID
     Route: 048

REACTIONS (4)
  - DILATATION INTRAHEPATIC DUCT ACQUIRED [None]
  - HEPATOTOXICITY [None]
  - LIVER FUNCTION TEST ABNORMAL [None]
  - VENOOCCLUSIVE LIVER DISEASE [None]
